FAERS Safety Report 16034765 (Version 1)
Quarter: 2019Q1

REPORT INFORMATION
  Report Type: Spontaneous
  Country: ES (occurrence: ES)
  Receive Date: 20190305
  Receipt Date: 20190305
  Transmission Date: 20190418
  Serious: Yes (Death, Other)
  Sender: FDA-Public Use
  Company Number: ES-ALKEM LABORATORIES LIMITED-ES-ALKEM-2019-01873

PATIENT
  Age: 8 Year
  Sex: Female

DRUGS (2)
  1. NIMOTUZUMAB [Suspect]
     Active Substance: NIMOTUZUMAB
     Indication: PRODUCT USED FOR UNKNOWN INDICATION
     Dosage: UNK
     Route: 065
  2. TEMOZOLOMIDE. [Suspect]
     Active Substance: TEMOZOLOMIDE
     Indication: PRODUCT USED FOR UNKNOWN INDICATION
     Dosage: UNK
     Route: 065

REACTIONS (5)
  - Oesophagitis [Unknown]
  - Leukopenia [Unknown]
  - Thrombocytopenia [Unknown]
  - Disease progression [Fatal]
  - Dermatitis [Unknown]
